FAERS Safety Report 6020476-6 (Version None)
Quarter: 2008Q4

REPORT INFORMATION
  Report Type: 
  Country: None (occurrence: None)
  Receive Date: 20081222
  Receipt Date: 20081209
  Transmission Date: 20090506
  Serious: Yes (Other)
  Sender: FDA-Public Use
  Company Number: 8040389

PATIENT
  Age: 48 Year
  Sex: Male

DRUGS (8)
  1. NIFEDIPINE [Suspect]
     Indication: HYPERTENSION
     Dosage: 40 MG
  2. NIFEDIPINE [Suspect]
     Indication: HYPERTENSION
     Dosage: 20 MG /D
  3. EPLERENONE [Suspect]
     Indication: HYPERTENSION
     Dosage: 50 MG/D
  4. VORICONAZOLE [Suspect]
     Indication: ANTIFUNGAL PROPHYLAXIS
     Dosage: 6 MG/KG TWICE IV
     Route: 042
  5. VORICONAZOLE [Suspect]
     Indication: ANTIFUNGAL PROPHYLAXIS
     Dosage: 4 MG/KG  4/D IV
     Route: 042
  6. CANDESARTAN [Concomitant]
  7. CYCLOSPORINE [Concomitant]
  8. METHYLPREDNISOLONE 16MG TAB [Concomitant]

REACTIONS (2)
  - DRUG INTERACTION [None]
  - HYPOTENSION [None]
